FAERS Safety Report 25608531 (Version 1)
Quarter: 2025Q3

REPORT INFORMATION
  Report Type: Report from Study
  Country: CA (occurrence: CA)
  Receive Date: 20250726
  Receipt Date: 20250726
  Transmission Date: 20251021
  Serious: Yes (Other)
  Sender: ACCORD
  Company Number: None

PATIENT
  Age: 35 Year
  Sex: Female

DRUGS (2)
  1. METHOTREXATE [Suspect]
     Active Substance: METHOTREXATE
     Indication: Product used for unknown indication
     Route: 013
  2. ETANERCEPT [Suspect]
     Active Substance: ETANERCEPT
     Indication: Rheumatoid arthritis
     Route: 058

REACTIONS (6)
  - Therapeutic product effect decreased [Unknown]
  - Needle issue [Unknown]
  - Contusion [Unknown]
  - Immunosuppression [Unknown]
  - Product availability issue [Unknown]
  - Abdominal discomfort [Unknown]
